FAERS Safety Report 7351422-0 (Version None)
Quarter: 2011Q1

REPORT INFORMATION
  Report Type: 
  Country: None (occurrence: None)
  Receive Date: 20110314
  Receipt Date: 20110301
  Transmission Date: 20110831
  Serious: Yes (Other)
  Sender: FDA-Public Use
  Company Number: PHHY2011BR17625

PATIENT
  Sex: Female
  Weight: 84 kg

DRUGS (1)
  1. METHERGINE [Suspect]
     Indication: POLYCYSTIC OVARIES
     Dosage: 1 DF, QD
     Route: 048

REACTIONS (1)
  - HAEMORRHAGE [None]
